FAERS Safety Report 25158682 (Version 1)
Quarter: 2025Q2

REPORT INFORMATION
  Report Type: Spontaneous
  Country: US (occurrence: US)
  Receive Date: 20250404
  Receipt Date: 20250404
  Transmission Date: 20250717
  Serious: Yes (Other)
  Sender: HIKMA
  Company Number: US-HIKMA PHARMACEUTICALS USA INC.-US-H14001-25-02812

PATIENT
  Sex: Male

DRUGS (23)
  1. BEVACIZUMAB [Suspect]
     Active Substance: BEVACIZUMAB
     Indication: Hepatic cancer metastatic
     Route: 065
     Dates: start: 202101
  2. BEVACIZUMAB [Suspect]
     Active Substance: BEVACIZUMAB
     Indication: Metastases to lymph nodes
  3. BEVACIZUMAB [Suspect]
     Active Substance: BEVACIZUMAB
     Indication: Metastases to peritoneum
  4. FLUOROURACIL [Suspect]
     Active Substance: FLUOROURACIL
     Indication: Metastases to lymph nodes
     Route: 065
     Dates: start: 202101
  5. FLUOROURACIL [Suspect]
     Active Substance: FLUOROURACIL
     Indication: Metastases to peritoneum
     Route: 065
     Dates: start: 202211
  6. FLUOROURACIL [Suspect]
     Active Substance: FLUOROURACIL
     Indication: Hepatic cancer metastatic
     Route: 065
     Dates: start: 201907
  7. FLUOROURACIL [Suspect]
     Active Substance: FLUOROURACIL
     Route: 065
     Dates: start: 202302
  8. FLUOROURACIL [Suspect]
     Active Substance: FLUOROURACIL
     Route: 065
     Dates: start: 202304
  9. IRINOTECAN [Suspect]
     Active Substance: IRINOTECAN
     Indication: Metastases to lymph nodes
     Route: 065
     Dates: start: 202211
  10. IRINOTECAN [Suspect]
     Active Substance: IRINOTECAN
     Indication: Hepatic cancer metastatic
     Route: 065
     Dates: start: 202101
  11. IRINOTECAN [Suspect]
     Active Substance: IRINOTECAN
     Indication: Metastases to peritoneum
     Route: 065
     Dates: start: 202304
  12. LEUCOVORIN [Suspect]
     Active Substance: LEUCOVORIN\LEUCOVORIN CALCIUM
     Indication: Metastases to lymph nodes
     Route: 065
     Dates: start: 202101
  13. LEUCOVORIN [Suspect]
     Active Substance: LEUCOVORIN\LEUCOVORIN CALCIUM
     Indication: Metastases to peritoneum
     Route: 065
     Dates: start: 202211
  14. LEUCOVORIN [Suspect]
     Active Substance: LEUCOVORIN\LEUCOVORIN CALCIUM
     Route: 065
     Dates: start: 202302
  15. LEUCOVORIN [Suspect]
     Active Substance: LEUCOVORIN\LEUCOVORIN CALCIUM
     Route: 065
     Dates: start: 202304
  16. LEUCOVORIN [Suspect]
     Active Substance: LEUCOVORIN\LEUCOVORIN CALCIUM
     Indication: Hepatic cancer metastatic
     Route: 065
     Dates: start: 201907
  17. OXALIPLATIN [Suspect]
     Active Substance: OXALIPLATIN
     Indication: Hepatic cancer metastatic
     Route: 065
     Dates: start: 202302
  18. OXALIPLATIN [Suspect]
     Active Substance: OXALIPLATIN
     Indication: Colorectal cancer
     Route: 065
     Dates: start: 201907
  19. OXALIPLATIN [Suspect]
     Active Substance: OXALIPLATIN
     Indication: Metastases to lymph nodes
  20. OXALIPLATIN [Suspect]
     Active Substance: OXALIPLATIN
     Indication: Metastases to peritoneum
  21. PANITUMUMAB [Suspect]
     Active Substance: PANITUMUMAB
     Indication: Hepatic cancer metastatic
     Route: 065
     Dates: start: 202304
  22. PANITUMUMAB [Suspect]
     Active Substance: PANITUMUMAB
     Indication: Metastases to lymph nodes
  23. PANITUMUMAB [Suspect]
     Active Substance: PANITUMUMAB
     Indication: Metastases to peritoneum

REACTIONS (3)
  - Adenocarcinoma of colon [Unknown]
  - Disease progression [Unknown]
  - Drug ineffective [Unknown]

NARRATIVE: CASE EVENT DATE: 20190701
